FAERS Safety Report 9161645 (Version 1)
Quarter: 2013Q1

REPORT INFORMATION
  Report Type: Spontaneous
  Country: JP (occurrence: JP)
  Receive Date: 20130313
  Receipt Date: 20130313
  Transmission Date: 20140127
  Serious: Yes (Other)
  Sender: FDA-Public Use
  Company Number: JP-009507513-1206USA00452

PATIENT
  Age: 66 Year
  Sex: Female
  Weight: 69 kg

DRUGS (5)
  1. JANUVIA TABLETS 25MG [Suspect]
     Indication: DIABETES MELLITUS
     Dosage: 25 MG, QD
     Route: 048
     Dates: start: 20111027, end: 20120416
  2. JANUVIA TABLETS 50MG [Suspect]
     Indication: DIABETES MELLITUS
     Dosage: 50 MG, QD
     Route: 048
     Dates: start: 20120417
  3. AMARYL [Concomitant]
     Indication: DIABETES MELLITUS
     Dosage: 1 MG, QD
     Route: 048
     Dates: end: 20120416
  4. BASEN OD [Concomitant]
     Indication: DIABETES MELLITUS
     Dosage: 0.3 MG, TID
     Route: 048
  5. METGLUCO [Concomitant]
     Indication: DIABETES MELLITUS
     Dosage: 750 MG, BID
     Route: 048
     Dates: start: 20110801

REACTIONS (1)
  - Basedow^s disease [Recovered/Resolved]
